FAERS Safety Report 5192164-X (Version None)
Quarter: 2006Q4

REPORT INFORMATION
  Report Type: 
  Country: None (occurrence: None)
  Receive Date: 20061220
  Receipt Date: 20061204
  Transmission Date: 20070319
  Serious: Yes (Hospitalization)
  Sender: FDA-Public Use
  Company Number: DSA_29028_2006

PATIENT
  Age: 93 Year
  Sex: Male
  Weight: 36 kg

DRUGS (8)
  1. RENIVACE [Suspect]
     Indication: CARDIAC FAILURE CONGESTIVE
     Dosage: 5 MG BID PO
     Route: 048
     Dates: start: 20050511, end: 20061121
  2. ASPIRIN [Concomitant]
  3. GASTROM [Concomitant]
  4. GASPORT-D [Concomitant]
  5. PURSENNID [Concomitant]
  6. NITRODERM [Concomitant]
  7. LACTEC 500 [Concomitant]
  8. SOLITA-T3 [Concomitant]

REACTIONS (3)
  - INAPPROPRIATE ANTIDIURETIC HORMONE SECRETION [None]
  - LARGE INTESTINAL HAEMORRHAGE [None]
  - ULCER [None]
